FAERS Safety Report 5850260-5 (Version None)
Quarter: 2008Q3

REPORT INFORMATION
  Report Type: 
  Country: None (occurrence: None)
  Receive Date: 20080819
  Receipt Date: 20080811
  Transmission Date: 20090109
  Serious: Yes (Other)
  Sender: FDA-Public Use
  Company Number: PHHY2008GB18302

PATIENT
  Sex: Female
  Weight: 128 kg

DRUGS (2)
  1. CLOZARIL [Suspect]
     Indication: SCHIZOPHRENIA
     Dosage: UNK
     Route: 048
     Dates: start: 20000706, end: 20051205
  2. CLOZARIL [Suspect]
     Dosage: UNK
     Route: 048
     Dates: start: 20061204

REACTIONS (4)
  - GASTRIC BANDING [None]
  - HYPERPHAGIA [None]
  - OBESITY [None]
  - WEIGHT INCREASED [None]
